FAERS Safety Report 9805206 (Version 4)
Quarter: 2014Q2

REPORT INFORMATION
  Report Type: Report from Study
  Country: BR (occurrence: BR)
  Receive Date: 20140109
  Receipt Date: 20140609
  Transmission Date: 20141212
  Serious: Yes (Hospitalization, Other)
  Sender: FDA-Public Use
  Company Number: BR-ROCHE-789239

PATIENT
  Age: 76 Year
  Sex: Female
  Weight: 68 kg

DRUGS (5)
  1. MABTHERA [Suspect]
     Indication: RHEUMATOID ARTHRITIS
     Route: 065
     Dates: start: 20101104, end: 20101104
  2. MABTHERA [Suspect]
     Route: 065
     Dates: start: 20101118, end: 20101118
  3. VITAMIN B6 [Concomitant]
  4. ENALAPRIL [Concomitant]
     Dosage: DRUG NAME: ENALAMED.
     Route: 065
  5. DIPROSPAN [Concomitant]

REACTIONS (18)
  - Syncope [Recovering/Resolving]
  - Neck surgery [Unknown]
  - Pharyngeal abscess [Unknown]
  - Dyspepsia [Recovering/Resolving]
  - Vomiting [Recovering/Resolving]
  - Asthenia [Not Recovered/Not Resolved]
  - Weight decreased [Not Recovered/Not Resolved]
  - Memory impairment [Unknown]
  - Cough [Not Recovered/Not Resolved]
  - Arthralgia [Unknown]
  - Pain in extremity [Unknown]
  - Peripheral swelling [Unknown]
  - Neck pain [Unknown]
  - Pain in extremity [Unknown]
  - Fall [Unknown]
  - Swelling [Not Recovered/Not Resolved]
  - Upper extremity mass [Not Recovered/Not Resolved]
  - Rheumatoid arthritis [Not Recovered/Not Resolved]
